FAERS Safety Report 12713844 (Version 1)
Quarter: 2016Q3

REPORT INFORMATION
  Report Type: Spontaneous
  Country: DE (occurrence: DE)
  Receive Date: 20160905
  Receipt Date: 20160905
  Transmission Date: 20161109
  Serious: Yes (Disabling, Other)
  Sender: FDA-Public Use
  Company Number: DE-009507513-1609DEU000588

PATIENT
  Age: 67 Year
  Sex: Female

DRUGS (1)
  1. TEMODAL [Suspect]
     Active Substance: TEMOZOLOMIDE
     Indication: ASTROCYTOMA
     Route: 048

REACTIONS (7)
  - Walking aid user [Unknown]
  - Fall [Unknown]
  - Neuropathy peripheral [Unknown]
  - Helplessness [Unknown]
  - Prescribed overdose [Unknown]
  - Product use issue [Unknown]
  - Gait disturbance [Unknown]
